FAERS Safety Report 18116851 (Version 2)
Quarter: 2020Q3

REPORT INFORMATION
  Report Type: Spontaneous
  Country: US (occurrence: US)
  Receive Date: 20200806
  Receipt Date: 20200814
  Transmission Date: 20201103
  Serious: Yes (Hospitalization)
  Sender: FDA-Public Use
  Company Number: US-TEVA-2020-US-1810032

PATIENT
  Age: 64 Year
  Sex: Male

DRUGS (13)
  1. FUROSEMIDE. [Suspect]
     Active Substance: FUROSEMIDE
     Indication: DIURETIC THERAPY
     Route: 048
  2. MIDODRINE [Concomitant]
     Active Substance: MIDODRINE
     Indication: HYPOTENSION
     Dosage: 60 MILLIGRAM DAILY; DOSE INCREASED FOR HYPOTENSION; ADMINISTERED THRICE DAILY
     Route: 065
  3. LOPERAMIDE [Concomitant]
     Active Substance: LOPERAMIDE
     Dosage: ADMINISTERED THREE TIMES DAILY
     Route: 065
  4. DEXAMETHASONE. [Concomitant]
     Active Substance: DEXAMETHASONE
     Indication: PLASMA CELL MYELOMA
  5. PERIPHERAL PARENTERAL NUTRITION [Concomitant]
     Indication: MALNUTRITION
     Dosage: 2 LITERS DAILY;
     Route: 051
  6. CEFEPIME [Concomitant]
     Active Substance: CEFEPIME HYDROCHLORIDE
     Indication: ANTIBIOTIC THERAPY
     Dosage: ADMINISTERED A SINGLE DOSE
     Route: 065
  7. PANCRELIPASE. [Concomitant]
     Active Substance: PANCRELIPASE
     Indication: DIARRHOEA
     Route: 065
  8. FLUDROCORTISONE [Suspect]
     Active Substance: FLUDROCORTISONE
     Indication: SYNCOPE
     Route: 065
  9. TORASEMIDE [Suspect]
     Active Substance: TORSEMIDE
     Indication: DIURETIC THERAPY
  10. MIDODRINE [Concomitant]
     Active Substance: MIDODRINE
     Indication: SYNCOPE
     Dosage: 45 MILLIGRAM DAILY; ADMINISTERED THRICE DAILY
     Route: 065
  11. LOPERAMIDE [Concomitant]
     Active Substance: LOPERAMIDE
     Indication: DIARRHOEA
     Dosage: 4 MILLIGRAM DAILY;
     Route: 065
  12. LACTATED RINGERS SOLUTION [Concomitant]
     Active Substance: CALCIUM CHLORIDE\POTASSIUM CHLORIDE\SODIUM CHLORIDE\SODIUM LACTATE
     Indication: HYPOTENSION
     Route: 042
  13. DEXAMETHASONE. [Concomitant]
     Active Substance: DEXAMETHASONE
     Indication: HYPOTENSION
     Route: 042

REACTIONS (5)
  - Cardiac failure [Unknown]
  - Ascites [Unknown]
  - Fluid overload [Unknown]
  - Pleural effusion [Unknown]
  - Hypotension [Recovering/Resolving]
